FAERS Safety Report 18920639 (Version 4)
Quarter: 2022Q2

REPORT INFORMATION
  Report Type: Spontaneous
  Country: US (occurrence: US)
  Receive Date: 20210222
  Receipt Date: 20220511
  Transmission Date: 20220721
  Serious: Yes (Other)
  Sender: FDA-Public Use
  Company Number: US-AMGEN-USASP2021025163

PATIENT
  Sex: Female
  Weight: 3.46 kg

DRUGS (6)
  1. FILGRASTIM [Suspect]
     Active Substance: FILGRASTIM
     Indication: Neutropenia
     Dosage: UNK
     Route: 065
  2. MELPHALAN [Concomitant]
     Active Substance: MELPHALAN
     Dosage: 4.7 MILLIGRAM/KILOGRAM(ON DAY3)
  3. FLUDARABINE [Concomitant]
     Active Substance: FLUDARABINE PHOSPHATE
     Dosage: 1 MILLIGRAM/KILOGRAM, QD(DAY08-4)
  4. ALEMTUZUMAB [Concomitant]
     Active Substance: ALEMTUZUMAB
     Dosage: 0.2 MILLIGRAM/KILOGRAM, QD (DAY1-14, DAY10)
  5. TACROLIMUS [Concomitant]
     Active Substance: TACROLIMUS
     Indication: Prophylaxis
     Dosage: UNK
  6. MYCOPHENOLATE MOFETIL [Concomitant]
     Active Substance: MYCOPHENOLATE MOFETIL
     Indication: Prophylaxis
     Dosage: UNK

REACTIONS (3)
  - Venoocclusive liver disease [Recovered/Resolved]
  - Acute graft versus host disease in skin [Unknown]
  - Therapeutic product effect incomplete [Unknown]
